APPROVED DRUG PRODUCT: GLIPIZIDE
Active Ingredient: GLIPIZIDE
Strength: 10MG
Dosage Form/Route: TABLET;ORAL
Application: A074438 | Product #002
Applicant: PHARMOBEDIENT CONSULTING LLC
Approved: Jun 20, 1995 | RLD: No | RS: No | Type: DISCN